FAERS Safety Report 4286406-2 (Version None)
Quarter: 2004Q1

REPORT INFORMATION
  Report Type: 
  Country: None (occurrence: None)
  Receive Date: 20040126
  Receipt Date: 20021230
  Transmission Date: 20041129
  Serious: No
  Sender: FDA-Public Use
  Company Number: 02P-163-0207377-00

PATIENT
  Age: 52 Year
  Sex: Male

DRUGS (4)
  1. HYTRIN [Suspect]
     Dosage: 10 MG, 1 IN 1 D, ORAL; SEE IMAGE
     Route: 048
     Dates: start: 20021001, end: 20021003
  2. HYTRIN [Suspect]
     Dosage: 10 MG, 1 IN 1 D, ORAL; SEE IMAGE
     Route: 048
     Dates: start: 20021004, end: 20021006
  3. HYTRIN [Suspect]
     Dosage: 10 MG, 1 IN 1 D, ORAL; SEE IMAGE
     Route: 048
     Dates: start: 20021007, end: 20021010
  4. HYTRIN [Suspect]
     Dosage: 10 MG, 1 IN 1 D, ORAL; SEE IMAGE
     Route: 048
     Dates: start: 20021011, end: 20021015

REACTIONS (3)
  - BLOOD CREATINE PHOSPHOKINASE INCREASED [None]
  - HEADACHE [None]
  - ORTHOSTATIC HYPOTENSION [None]
